FAERS Safety Report 19862554 (Version 2)
Quarter: 2021Q3

REPORT INFORMATION
  Report Type: Other
  Country: CA (occurrence: CA)
  Receive Date: 20210921
  Receipt Date: 20210927
  Transmission Date: 20211014
  Serious: Yes (Hospitalization)
  Sender: FDA-Public Use
  Company Number: CA-ROCHE-2911118

PATIENT
  Sex: Female

DRUGS (19)
  1. CALCIUM CARBONATE. [Concomitant]
     Active Substance: CALCIUM CARBONATE
  2. LEVOTHYROXINE. [Concomitant]
     Active Substance: LEVOTHYROXINE
  3. RABEPRAZOLE [Concomitant]
     Active Substance: RABEPRAZOLE
  4. SALBUTAMOL [Concomitant]
     Active Substance: ALBUTEROL
  5. ACETAMINOPHEN. [Concomitant]
     Active Substance: ACETAMINOPHEN
     Indication: PREMEDICATION
     Dates: start: 20170515
  6. WELLBUTRIN [Concomitant]
     Active Substance: BUPROPION HYDROCHLORIDE
  7. RITUXAN [Suspect]
     Active Substance: RITUXIMAB
     Indication: RHEUMATOID ARTHRITIS
     Route: 041
     Dates: start: 20170515
  8. LYRICA [Concomitant]
     Active Substance: PREGABALIN
  9. OXYNEO [Concomitant]
     Active Substance: OXYCODONE
  10. PLAQUENIL [Concomitant]
     Active Substance: HYDROXYCHLOROQUINE SULFATE
  11. CANDESARTAN. [Concomitant]
     Active Substance: CANDESARTAN
     Indication: BLOOD PRESSURE INCREASED
  12. PREDNISONE. [Concomitant]
     Active Substance: PREDNISONE
  13. CIPRALEX [Concomitant]
     Active Substance: ESCITALOPRAM OXALATE
  14. FLUTICASONE. [Concomitant]
     Active Substance: FLUTICASONE
     Indication: PULMONARY FIBROSIS
  15. ALENDRONATE [Concomitant]
     Active Substance: ALENDRONATE SODIUM
     Indication: OSTEOPOROSIS
  16. DIPHENHYDRAMINE. [Concomitant]
     Active Substance: DIPHENHYDRAMINE
     Indication: PREMEDICATION
     Dates: start: 20170515
  17. IBUPROFEN. [Concomitant]
     Active Substance: IBUPROFEN
  18. METFORMIN [Concomitant]
     Active Substance: METFORMIN HYDROCHLORIDE
  19. METHYLPREDNISOLONE. [Concomitant]
     Active Substance: METHYLPREDNISOLONE
     Indication: PREMEDICATION
     Route: 042
     Dates: start: 20170515

REACTIONS (3)
  - Pyrexia [Unknown]
  - Chills [Unknown]
  - Sepsis [Unknown]

NARRATIVE: CASE EVENT DATE: 2021
